FAERS Safety Report 8355555-1 (Version None)
Quarter: 2012Q2

REPORT INFORMATION
  Report Type: 
  Country: None (occurrence: None)
  Receive Date: 20120513
  Receipt Date: 20120502
  Transmission Date: 20120825
  Serious: Yes (Hospitalization)
  Sender: FDA-Public Use
  Company Number: JP-ELI_LILLY_AND_COMPANY-JP201107006268

PATIENT
  Age: 85 Year
  Sex: Female

DRUGS (1)
  1. FORTEO [Suspect]
     Dosage: UNK
     Route: 058
     Dates: start: 20110705, end: 20120111

REACTIONS (18)
  - MUSCULOSKELETAL STIFFNESS [None]
  - MUSCLE SPASMS [None]
  - NOCTURIA [None]
  - BACK PAIN [None]
  - INJECTION SITE HAEMATOMA [None]
  - BREAST PAIN [None]
  - BLOOD PRESSURE INCREASED [None]
  - ARTHRALGIA [None]
  - FEELING ABNORMAL [None]
  - INTESTINAL OBSTRUCTION [None]
  - OEDEMA [None]
  - TREMOR [None]
  - JOINT SWELLING [None]
  - HEADACHE [None]
  - VAGINAL DISCHARGE [None]
  - PALPITATIONS [None]
  - SENSATION OF HEAVINESS [None]
  - HEART RATE INCREASED [None]
